FAERS Safety Report 24794185 (Version 1)
Quarter: 2024Q4

REPORT INFORMATION
  Report Type: Spontaneous
  Country: TW (occurrence: TW)
  Receive Date: 20241231
  Receipt Date: 20241231
  Transmission Date: 20250115
  Serious: Yes (Life-Threatening, Other)
  Sender: MERCK
  Company Number: TW-009507513-2412TWN009545

PATIENT
  Age: 30 Year
  Sex: Female

DRUGS (8)
  1. BRIDION [Suspect]
     Active Substance: SUGAMMADEX
     Indication: Neuromuscular blockade reversal
     Dosage: 200 MILLIGRAM, ONCE
     Route: 042
     Dates: start: 20240909, end: 20240909
  2. ROCURONIUM BROMIDE [Suspect]
     Active Substance: ROCURONIUM BROMIDE
     Dosage: 70 MILLIGRAM
     Route: 042
  3. MIDAZOLAM [Suspect]
     Active Substance: MIDAZOLAM
     Dosage: 2.5 MILLIGRAM
     Route: 042
     Dates: start: 20240909
  4. FENTANYL [Suspect]
     Active Substance: FENTANYL
     Dosage: 100 MICROGRAM
     Route: 042
     Dates: start: 20240909
  5. FENTANYL [Suspect]
     Active Substance: FENTANYL
     Dosage: UNK
     Route: 042
  6. LIDOCAINE [Suspect]
     Active Substance: LIDOCAINE
     Dosage: 50 MILLIGRAM
     Route: 042
     Dates: start: 20240909
  7. PROPOFOL [Suspect]
     Active Substance: PROPOFOL
     Dosage: 120/40MG
     Route: 042
     Dates: start: 20240909
  8. STAZOLIN [Concomitant]
     Dosage: 1 GRAM
     Dates: start: 20240909

REACTIONS (1)
  - Anaphylactic shock [Recovered/Resolved]

NARRATIVE: CASE EVENT DATE: 20240909
